FAERS Safety Report 6194640-X (Version None)
Quarter: 2009Q2

REPORT INFORMATION
  Report Type: 
  Country: None (occurrence: None)
  Receive Date: 20090519
  Receipt Date: 20090507
  Transmission Date: 20091009
  Serious: Yes (Hospitalization)
  Sender: FDA-Public Use
  Company Number: FR-PFIZER INC-2008094986

PATIENT
  Age: 68 Year

DRUGS (5)
  1. SU-011,248 [Suspect]
     Indication: PROSTATE CANCER
     Dosage: 37.5 MG, 1X/DAY
     Route: 048
     Dates: start: 20080704, end: 20081029
  2. TAHOR [Concomitant]
     Route: 048
     Dates: start: 19980101
  3. AMLODIPINE BESYLATE [Concomitant]
     Route: 048
     Dates: start: 20080814
  4. LEVOTHYROX [Concomitant]
     Route: 048
     Dates: start: 20050311
  5. LEUPROLIDE ACETATE [Concomitant]
     Indication: PROSTATE CANCER
     Dosage: UNK
     Route: 058
     Dates: start: 20061201

REACTIONS (2)
  - HAEMATURIA [None]
  - RENAL FAILURE ACUTE [None]
